FAERS Safety Report 4558653-3 (Version None)
Quarter: 2005Q1

REPORT INFORMATION
  Report Type: 
  Country: None (occurrence: None)
  Receive Date: 20050121
  Receipt Date: 20050121
  Transmission Date: 20050727
  Serious: Yes (Other)
  Sender: FDA-Public Use
  Company Number: None

PATIENT
  Age: 8 Year
  Sex: Male
  Weight: 23.587 kg

DRUGS (1)
  1. LIPRAM 4500 [Suspect]
     Indication: CYSTIC FIBROSIS
     Dosage: 5 WITH MEALS 3 WITH SNACKS

REACTIONS (4)
  - ABNORMAL FAECES [None]
  - FLATULENCE [None]
  - FREQUENT BOWEL MOVEMENTS [None]
  - WEIGHT GAIN POOR [None]
